FAERS Safety Report 14543605 (Version 2)
Quarter: 2018Q3

REPORT INFORMATION
  Report Type: Spontaneous
  Country: US (occurrence: US)
  Receive Date: 20180216
  Receipt Date: 20180815
  Transmission Date: 20181010
  Serious: Yes (Other)
  Sender: FDA-Public Use
  Company Number: US-TAKEDA-2018TUS004259

PATIENT

DRUGS (158)
  1. PREVACID [Suspect]
     Active Substance: LANSOPRAZOLE
     Indication: OESOPHAGITIS
     Dosage: UNK
     Route: 048
     Dates: start: 20000208
  2. ASPIRIN 81 [Concomitant]
     Active Substance: ASPIRIN
     Indication: CORONARY ARTERY DISEASE
     Dosage: 81 MG, UNK
     Route: 048
     Dates: start: 20120404, end: 20120505
  3. LOSARTAN. [Concomitant]
     Active Substance: LOSARTAN
     Indication: HYPERTENSION
     Dosage: 50 MG, BID
     Dates: start: 20120316, end: 20170831
  4. TERAZOSIN [Concomitant]
     Active Substance: TERAZOSIN\TERAZOSIN HYDROCHLORIDE
     Indication: BENIGN PROSTATIC HYPERPLASIA
     Dosage: 2 MG, UNK
     Dates: start: 20161107, end: 201708
  5. MECLIZINE [Concomitant]
     Active Substance: MECLIZINE HYDROCHLORIDE
     Dosage: UNK
     Dates: start: 20170301, end: 20170306
  6. AXID [Concomitant]
     Active Substance: NIZATIDINE
     Dosage: UNK
     Dates: start: 19931122
  7. TYLENOL [Concomitant]
     Active Substance: ACETAMINOPHEN
     Dosage: UNK
     Dates: start: 199405
  8. TYLENOL [Concomitant]
     Active Substance: ACETAMINOPHEN
     Dosage: UNK
     Dates: start: 199408
  9. WYGESIC [Concomitant]
     Active Substance: ACETAMINOPHEN\PROPOXYPHENE HYDROCHLORIDE
     Indication: PAIN
     Dosage: UNK
     Dates: start: 19910905, end: 19920515
  10. MICARID PLUS [Concomitant]
     Dosage: UNK
     Dates: start: 200210
  11. OXYCONTIN [Concomitant]
     Active Substance: OXYCODONE HYDROCHLORIDE
     Indication: MUSCULOSKELETAL PAIN
     Dosage: UNK
     Dates: start: 200002
  12. PRANDIN                            /00882701/ [Concomitant]
     Active Substance: DEFLAZACORT
     Dosage: UNK
     Dates: start: 200112
  13. NORVASC [Concomitant]
     Active Substance: AMLODIPINE BESYLATE
     Indication: HYPERTENSION
     Dosage: UNK
     Dates: start: 199511
  14. ERYTHROMYCIN. [Concomitant]
     Active Substance: ERYTHROMYCIN
     Indication: SINUSITIS
     Dosage: UNK
     Dates: start: 19940922
  15. AZITHROMYCIN ANHYDROUS. [Concomitant]
     Active Substance: AZITHROMYCIN ANHYDROUS
     Dosage: UNK
     Dates: start: 19951003
  16. ELAVIL [Concomitant]
     Active Substance: AMITRIPTYLINE HYDROCHLORIDE
     Dosage: 50 MG, UNK
     Dates: start: 19920117
  17. ASPIRIN 81 [Concomitant]
     Active Substance: ASPIRIN
     Indication: CARDIOVASCULAR EVENT PROPHYLAXIS
     Dosage: 81 MG, UNK
     Route: 048
     Dates: start: 20150619, end: 20150720
  18. ASPIRIN 81 [Concomitant]
     Active Substance: ASPIRIN
     Dosage: 81 MG, UNK
     Route: 048
     Dates: start: 20170820, end: 20171016
  19. BRILINTA [Concomitant]
     Active Substance: TICAGRELOR
     Indication: CORONARY ARTERY DISEASE
     Dosage: 90 MG, BID
     Dates: start: 20151214, end: 20170726
  20. HYDROCODONE BITARTRATE AND ACETAMINOPHEN [Concomitant]
     Active Substance: ACETAMINOPHEN\HYDROCODONE BITARTRATE
     Indication: ARTHRALGIA
     Dosage: UNK
     Dates: start: 20161107, end: 20170209
  21. NIFEDIPINE. [Concomitant]
     Active Substance: NIFEDIPINE
     Indication: HYPERTENSION
     Dosage: 60 MG, UNK
     Dates: start: 20170526, end: 20170626
  22. ASPIRIN                            /00002701/ [Concomitant]
     Active Substance: ASPIRIN
     Dosage: 81 MG, UNK
     Dates: start: 20150619, end: 20150720
  23. AXID [Concomitant]
     Active Substance: NIZATIDINE
     Dosage: UNK
     Dates: start: 19930813
  24. TYLENOL [Concomitant]
     Active Substance: ACETAMINOPHEN
     Indication: PAIN
     Dosage: UNK
     Dates: start: 19930125, end: 19930519
  25. WYGESIC [Concomitant]
     Active Substance: ACETAMINOPHEN\PROPOXYPHENE HYDROCHLORIDE
     Dosage: UNK
     Dates: start: 199405
  26. HYDELTRA?T.B.A. [Concomitant]
     Indication: ARTHRITIS
     Dosage: UNK
     Dates: start: 19920806
  27. MICARID PLUS [Concomitant]
     Dosage: UNK
     Dates: start: 20021023
  28. OXYCONTIN [Concomitant]
     Active Substance: OXYCODONE HYDROCHLORIDE
     Dosage: UNK
     Dates: start: 200301
  29. DAYPRO [Concomitant]
     Active Substance: OXAPROZIN
     Dosage: UNK
     Dates: start: 19931122
  30. CIPROFLOXACIN. [Concomitant]
     Active Substance: CIPROFLOXACIN
     Dosage: UNK
     Dates: start: 19990204
  31. TEQUIN [Concomitant]
     Active Substance: GATIFLOXACIN
     Indication: SINUSITIS
     Dosage: 400 MG, QD
     Dates: start: 200010
  32. TORADOL [Concomitant]
     Active Substance: KETOROLAC TROMETHAMINE
     Indication: INTERVERTEBRAL DISC DEGENERATION
     Dosage: 60 MG, UNK
     Dates: start: 19940815
  33. VERSED [Concomitant]
     Active Substance: MIDAZOLAM HYDROCHLORIDE
     Indication: COLONOSCOPY
     Dosage: UNK
  34. ELAVIL [Concomitant]
     Active Substance: AMITRIPTYLINE HYDROCHLORIDE
     Indication: PAIN
     Dosage: 50 MG, UNK
     Dates: start: 199201
  35. POTASSIUM [Concomitant]
     Active Substance: POTASSIUM
     Indication: TOOTH ABSCESS
     Dosage: 500 MG, TID
     Dates: start: 20150131, end: 20150209
  36. PEPCID                             /00305201/ [Concomitant]
     Active Substance: ALUMINUM HYDROXIDE\MAGNESIUM CARBONATE
     Dosage: UNK
     Dates: start: 19931110, end: 19980408
  37. TYLENOL [Concomitant]
     Active Substance: ACETAMINOPHEN
     Dosage: UNK
     Dates: start: 199212
  38. TYLENOL [Concomitant]
     Active Substance: ACETAMINOPHEN
     Dosage: UNK
     Dates: start: 199511
  39. WYGESIC [Concomitant]
     Active Substance: ACETAMINOPHEN\PROPOXYPHENE HYDROCHLORIDE
     Dosage: UNK
     Dates: start: 19921216, end: 19930519
  40. WYGESIC [Concomitant]
     Active Substance: ACETAMINOPHEN\PROPOXYPHENE HYDROCHLORIDE
     Dosage: UNK
     Dates: start: 199704
  41. WYGESIC [Concomitant]
     Active Substance: ACETAMINOPHEN\PROPOXYPHENE HYDROCHLORIDE
     Dosage: UNK
     Dates: start: 200002
  42. CARDURA [Concomitant]
     Active Substance: DOXAZOSIN MESYLATE
     Dosage: UNK
     Dates: start: 199311
  43. LODINE [Concomitant]
     Active Substance: ETODOLAC
     Indication: INSOMNIA
     Dosage: UNK
     Dates: start: 199108
  44. MICARID PLUS [Concomitant]
     Dosage: UNK
     Dates: start: 200301
  45. MICARID PLUS [Concomitant]
     Dosage: UNK
     Dates: start: 20011204
  46. PRANDIN                            /00882701/ [Concomitant]
     Active Substance: DEFLAZACORT
     Dosage: UNK
     Dates: start: 200210
  47. LISINOPRIL. [Concomitant]
     Active Substance: LISINOPRIL
     Indication: HYPERTENSION
     Dosage: UNK
     Dates: start: 199311
  48. TUSSI?ORGANIDIN DM [Concomitant]
     Indication: COUGH
     Dosage: UNK
     Dates: start: 199409
  49. NITROGLYCERINE [Concomitant]
     Active Substance: NITROGLYCERIN
     Indication: CATHETERISATION CARDIAC
     Dosage: UNK
     Dates: start: 19931122
  50. CHLORPHENIRAMINE MALEATE AND PSEUDOEPHEDRINE HYDROCHLORIDE [Concomitant]
     Active Substance: CHLORPHENIRAMINE MALEATE\PSEUDOEPHEDRINE HYDROCHLORIDE
     Indication: SINUSITIS
     Dosage: UNK
     Dates: start: 19970327
  51. AMLODIPINE [Concomitant]
     Active Substance: AMLODIPINE BESYLATE
     Indication: HYPERTENSION
     Dosage: 5 MG, QD
     Dates: start: 20120420, end: 201406
  52. GLIPIZIDE. [Concomitant]
     Active Substance: GLIPIZIDE
     Indication: TYPE 2 DIABETES MELLITUS
     Dosage: 10 MG, BID
     Dates: start: 20120316, end: 20170831
  53. METFORMIN [Concomitant]
     Active Substance: METFORMIN HYDROCHLORIDE
     Indication: TYPE 2 DIABETES MELLITUS
     Dosage: 500 MG, TID
     Dates: start: 20120316, end: 201611
  54. CARVEDIOL [Concomitant]
     Active Substance: CARVEDILOL
     Indication: HYPERTENSION
     Dosage: 3.125 MG, BID
     Dates: start: 20150619, end: 20151018
  55. MECLIZINE [Concomitant]
     Active Substance: MECLIZINE HYDROCHLORIDE
     Indication: VERTIGO
     Dosage: 25 MG, UNK
     Dates: start: 20170301
  56. AMOXICILLIN. [Concomitant]
     Active Substance: AMOXICILLIN
     Indication: ACUTE SINUSITIS
     Dosage: 500 MG, TID
     Dates: start: 20170316, end: 20170326
  57. AXID [Concomitant]
     Active Substance: NIZATIDINE
     Indication: GASTROOESOPHAGEAL REFLUX DISEASE
     Dosage: UNK
     Dates: start: 19920601, end: 19931124
  58. PEPCID                             /00305201/ [Concomitant]
     Active Substance: ALUMINUM HYDROXIDE\MAGNESIUM CARBONATE
     Indication: GASTROOESOPHAGEAL REFLUX DISEASE
     Dosage: UNK
     Dates: start: 19931110, end: 19960221
  59. PROZAC [Concomitant]
     Active Substance: FLUOXETINE HYDROCHLORIDE
     Dosage: 20 MG, BID
     Dates: start: 199311
  60. TYLENOL [Concomitant]
     Active Substance: ACETAMINOPHEN
     Dosage: UNK
     Dates: start: 20000918, end: 20001030
  61. PROSOM [Concomitant]
     Active Substance: ESTAZOLAM
     Indication: INSOMNIA
     Dosage: 2 MG, UNK
     Dates: start: 199109
  62. TEGRETOL [Concomitant]
     Active Substance: CARBAMAZEPINE
     Dosage: 100 MG, UNK
     Dates: start: 19930506
  63. PRANDIN                            /00882701/ [Concomitant]
     Active Substance: DEFLAZACORT
     Indication: TYPE 2 DIABETES MELLITUS
     Dosage: UNK
     Dates: start: 200009
  64. DAYPRO [Concomitant]
     Active Substance: OXAPROZIN
     Dosage: UNK
     Dates: start: 19940815
  65. CIPROFLOXACIN. [Concomitant]
     Active Substance: CIPROFLOXACIN
     Dosage: UNK
     Dates: start: 19970327
  66. CIPROFLOXACIN. [Concomitant]
     Active Substance: CIPROFLOXACIN
     Dosage: UNK
     Dates: start: 20000208
  67. ERYTHROMYCIN. [Concomitant]
     Active Substance: ERYTHROMYCIN
     Indication: TOOTH FRACTURE
     Dosage: UNK
     Dates: start: 19980929
  68. LISINOPRIL. [Concomitant]
     Active Substance: LISINOPRIL
     Dosage: UNK
     Dates: start: 199709
  69. LISINOPRIL. [Concomitant]
     Active Substance: LISINOPRIL
     Dosage: UNK
     Dates: start: 19931122
  70. WELLBUTRIN [Concomitant]
     Active Substance: BUPROPION HYDROCHLORIDE
     Indication: DEPRESSION
     Dosage: UNK
     Dates: start: 19970327, end: 19970502
  71. TORADOL [Concomitant]
     Active Substance: KETOROLAC TROMETHAMINE
     Indication: MYALGIA
     Dosage: 60 MG, UNK
     Dates: start: 19940407
  72. PRILOSEC [Suspect]
     Active Substance: OMEPRAZOLE MAGNESIUM
     Indication: ABDOMINAL PAIN
     Dosage: 20 MG, QD
     Route: 048
     Dates: start: 19980112, end: 19980505
  73. MECLIZINE [Concomitant]
     Active Substance: MECLIZINE HYDROCHLORIDE
     Indication: VERTIGO
     Dosage: 25 MG, UNK
     Route: 048
     Dates: start: 20170301, end: 20170306
  74. CHLORPHENIRAMINE MALEATE AND PSEUDOEPHEDRINE HYDROCHLORIDE [Concomitant]
     Active Substance: CHLORPHENIRAMINE MALEATE\PSEUDOEPHEDRINE HYDROCHLORIDE
     Dosage: UNK
     Dates: start: 199703
  75. AMLODIPINE [Concomitant]
     Active Substance: AMLODIPINE BESYLATE
     Dosage: 10 MG, QD
     Dates: start: 20140630, end: 20170831
  76. PENICILLIN V                       /00001801/ [Concomitant]
     Active Substance: PENICILLIN V
     Dosage: UNK
     Dates: start: 20150131, end: 20150209
  77. CARVEDIOL [Concomitant]
     Active Substance: CARVEDILOL
     Dosage: 3.125 MG, BID
     Dates: start: 20151214, end: 20161013
  78. TYLENOL [Concomitant]
     Active Substance: ACETAMINOPHEN
     Dosage: UNK
     Dates: start: 200210
  79. TYLENOL [Concomitant]
     Active Substance: ACETAMINOPHEN
     Dosage: UNK
     Dates: start: 19910905, end: 19920713
  80. WYGESIC [Concomitant]
     Active Substance: ACETAMINOPHEN\PROPOXYPHENE HYDROCHLORIDE
     Dosage: UNK
     Dates: start: 199208
  81. CELEBREX [Concomitant]
     Active Substance: CELECOXIB
     Dosage: 200 MG, BID
     Dates: start: 19990714
  82. ERYTHROMYCIN. [Concomitant]
     Active Substance: ERYTHROMYCIN
     Indication: INFECTION PROPHYLAXIS
     Dosage: UNK
     Dates: start: 19990204
  83. PHENERGAN VC W/ CODEINE [Concomitant]
     Active Substance: CODEINE PHOSPHATE\PHENYLEPHRINE HYDROCHLORIDE\PROMETHAZINE HYDROCHLORIDE
     Indication: COUGH
     Dosage: UNK
     Dates: start: 199503
  84. LISINOPRIL. [Concomitant]
     Active Substance: LISINOPRIL
     Dosage: UNK
     Dates: start: 19960814
  85. LISINOPRIL. [Concomitant]
     Active Substance: LISINOPRIL
     Dosage: UNK
     Dates: start: 19970924
  86. XANAX [Concomitant]
     Active Substance: ALPRAZOLAM
     Indication: DEPRESSION
     Dosage: 0.5 MG, BID
     Dates: start: 199704
  87. DEPO MEDROL WITH LIDOCAINE [Concomitant]
     Indication: INTERVERTEBRAL DISC DEGENERATION
     Dosage: UNK
     Dates: start: 19940815
  88. NEXIUM [Suspect]
     Active Substance: ESOMEPRAZOLE MAGNESIUM
     Indication: GASTROOESOPHAGEAL REFLUX DISEASE
     Dosage: 40 MG, QD
     Route: 048
     Dates: start: 20120404
  89. ASPIRIN                            /00002701/ [Concomitant]
     Active Substance: ASPIRIN
     Indication: CORONARY ARTERY DISEASE
     Dosage: 81 MG, UNK
     Dates: start: 20120404, end: 20120505
  90. FERROUS SULFATE. [Concomitant]
     Active Substance: FERROUS SULFATE
     Indication: MINERAL SUPPLEMENTATION
     Dosage: 325 MG, QD
     Dates: start: 20170211, end: 20170320
  91. ROLAIDS                            /00069401/ [Concomitant]
     Active Substance: DIHYDROXYALUMINUM SODIUM CARBONATE
     Indication: GASTROOESOPHAGEAL REFLUX DISEASE
     Dosage: UNK
     Dates: start: 19980408
  92. TYLENOL [Concomitant]
     Active Substance: ACETAMINOPHEN
     Dosage: UNK
     Dates: start: 199307
  93. TYLENOL [Concomitant]
     Active Substance: ACETAMINOPHEN
     Dosage: UNK
     Dates: start: 199311
  94. TYLENOL [Concomitant]
     Active Substance: ACETAMINOPHEN
     Dosage: UNK
     Dates: start: 199804
  95. WYGESIC [Concomitant]
     Active Substance: ACETAMINOPHEN\PROPOXYPHENE HYDROCHLORIDE
     Dosage: UNK
     Dates: start: 199311
  96. WYGESIC [Concomitant]
     Active Substance: ACETAMINOPHEN\PROPOXYPHENE HYDROCHLORIDE
     Dosage: UNK
     Dates: start: 199704
  97. DURAGESIC [Concomitant]
     Active Substance: FENTANYL
     Indication: PAIN
     Dosage: UNK
     Dates: start: 199208
  98. ATACAND [Concomitant]
     Active Substance: CANDESARTAN CILEXETIL
     Indication: HYPERTENSION
     Dosage: UNK
     Dates: start: 20000908, end: 20001006
  99. CIPROFLOXACIN. [Concomitant]
     Active Substance: CIPROFLOXACIN
     Dosage: UNK
     Dates: start: 199902
  100. NORVASC [Concomitant]
     Active Substance: AMLODIPINE BESYLATE
     Dosage: UNK
     Dates: start: 200002
  101. CELEBREX [Concomitant]
     Active Substance: CELECOXIB
     Indication: NECK PAIN
     Dosage: 200 MG, BID
     Dates: start: 199907
  102. PHENERGAN VC W/ CODEINE [Concomitant]
     Active Substance: CODEINE PHOSPHATE\PHENYLEPHRINE HYDROCHLORIDE\PROMETHAZINE HYDROCHLORIDE
     Dosage: UNK
     Dates: start: 199510
  103. LISINOPRIL. [Concomitant]
     Active Substance: LISINOPRIL
     Dosage: UNK
     Dates: start: 19951116
  104. KEFLEX [Concomitant]
     Active Substance: CEPHALEXIN
     Indication: INFECTION PROPHYLAXIS
     Dosage: 500 MG, QID
     Dates: start: 19930927
  105. TESTOSTERONE. [Concomitant]
     Active Substance: TESTOSTERONE
     Indication: ERECTILE DYSFUNCTION
     Dosage: UNK
     Dates: start: 199611
  106. PENICILLIN V                       /00001801/ [Concomitant]
     Active Substance: PENICILLIN V
     Indication: TOOTH ABSCESS
     Dosage: 500 MG, QID
     Dates: start: 20140630
  107. PRAVASTATIN. [Concomitant]
     Active Substance: PRAVASTATIN
     Indication: CORONARY ARTERY DISEASE
     Dosage: 40 MG, QD
     Dates: start: 20150619
  108. LEVEMIR [Concomitant]
     Active Substance: INSULIN DETEMIR
     Indication: TYPE 2 DIABETES MELLITUS
     Dosage: 100 UNK, UNK
     Dates: start: 20161107, end: 20171231
  109. ONDANSETRON [Concomitant]
     Active Substance: ONDANSETRON
     Indication: VERTIGO
     Dosage: 4 MG, UNK
     Dates: start: 20170301
  110. SODIUM CHLORIDE. [Concomitant]
     Active Substance: SODIUM CHLORIDE
     Indication: FLUID REPLACEMENT
     Dosage: UNK
     Dates: start: 20170301
  111. ASPIRIN                            /00002701/ [Concomitant]
     Active Substance: ASPIRIN
     Dosage: 81 MG, UNK
     Dates: start: 20170820, end: 20171016
  112. TYLENOL [Concomitant]
     Active Substance: ACETAMINOPHEN
     Dosage: UNK
     Dates: start: 200002
  113. WYGESIC [Concomitant]
     Active Substance: ACETAMINOPHEN\PROPOXYPHENE HYDROCHLORIDE
     Dosage: UNK
     Dates: start: 199408
  114. WYGESIC [Concomitant]
     Active Substance: ACETAMINOPHEN\PROPOXYPHENE HYDROCHLORIDE
     Dosage: UNK
     Dates: start: 199709
  115. BACLOFEN. [Concomitant]
     Active Substance: BACLOFEN
     Indication: FACIAL SPASM
     Dosage: UNK
     Dates: start: 199303
  116. CARDURA [Concomitant]
     Active Substance: DOXAZOSIN MESYLATE
     Indication: HYPERTENSION
     Dosage: UNK
     Dates: start: 19910829, end: 19910925
  117. MICARID PLUS [Concomitant]
     Indication: HYPERTENSION
     Dosage: UNK
     Dates: start: 200112
  118. OXYCONTIN [Concomitant]
     Active Substance: OXYCODONE HYDROCHLORIDE
     Dosage: UNK
     Dates: start: 20000918, end: 20001030
  119. DAYPRO [Concomitant]
     Active Substance: OXAPROZIN
     Indication: MUSCULOSKELETAL STIFFNESS
     Dosage: UNK
     Dates: start: 199311
  120. DAYPRO [Concomitant]
     Active Substance: OXAPROZIN
     Dosage: UNK
     Dates: start: 20020603
  121. CEFZIL [Concomitant]
     Active Substance: CEFPROZIL
     Dosage: UNK
     Dates: start: 20001030
  122. CIPROFLOXACIN. [Concomitant]
     Active Substance: CIPROFLOXACIN
     Dosage: UNK
     Dates: start: 200002
  123. NORVASC [Concomitant]
     Active Substance: AMLODIPINE BESYLATE
     Dosage: UNK
     Dates: start: 199608
  124. NORVASC [Concomitant]
     Active Substance: AMLODIPINE BESYLATE
     Dosage: UNK
     Dates: start: 20000908, end: 20001006
  125. PHENERGAN VC W/ CODEINE [Concomitant]
     Active Substance: CODEINE PHOSPHATE\PHENYLEPHRINE HYDROCHLORIDE\PROMETHAZINE HYDROCHLORIDE
     Dosage: UNK
     Dates: start: 199706
  126. RYNATAN                            /00311201/ [Concomitant]
     Indication: SINUS CONGESTION
     Dosage: UNK
     Dates: start: 199709
  127. AZITHROMYCIN ANHYDROUS. [Concomitant]
     Active Substance: AZITHROMYCIN ANHYDROUS
     Dosage: UNK
     Dates: start: 19951116
  128. AZITHROMYCIN ANHYDROUS. [Concomitant]
     Active Substance: AZITHROMYCIN ANHYDROUS
     Dosage: UNK
     Dates: start: 19970602
  129. TIGAN [Concomitant]
     Active Substance: TRIMETHOBENZAMIDE HYDROCHLORIDE
     Indication: NAUSEA
     Dosage: UNK
  130. HEPARIN [Concomitant]
     Active Substance: HEPARIN SODIUM
     Indication: CATHETERISATION CARDIAC
     Dosage: UNK
     Dates: start: 19931122
  131. PREVACID [Suspect]
     Active Substance: LANSOPRAZOLE
     Indication: ABDOMINAL PAIN UPPER
     Dosage: UNK
     Route: 048
     Dates: start: 19990524
  132. NEXIUM [Suspect]
     Active Substance: ESOMEPRAZOLE MAGNESIUM
     Dosage: UNK
     Route: 048
     Dates: start: 20120420, end: 20120505
  133. OMEPRAZOLE. [Suspect]
     Active Substance: OMEPRAZOLE
     Indication: GASTROOESOPHAGEAL REFLUX DISEASE
     Dosage: 20 MG, QD
     Route: 048
     Dates: start: 20130520, end: 20160531
  134. CARVEDIOL [Concomitant]
     Active Substance: CARVEDILOL
     Dosage: 6.25 MG, BID
     Dates: start: 20161107, end: 20161125
  135. NITROSTAT [Concomitant]
     Active Substance: NITROGLYCERIN
     Indication: CHEST PAIN
     Dosage: 0.4 MG, UNK
     Dates: start: 20150527, end: 20170830
  136. HYDROCODONE BITARTRATE AND ACETAMINOPHEN [Concomitant]
     Active Substance: ACETAMINOPHEN\HYDROCODONE BITARTRATE
     Dosage: UNK
     Dates: start: 20170406, end: 20170721
  137. PROZAC [Concomitant]
     Active Substance: FLUOXETINE HYDROCHLORIDE
     Indication: DEPRESSION
     Dosage: 20 MG, BID
     Dates: start: 19920316, end: 19920515
  138. PROZAC [Concomitant]
     Active Substance: FLUOXETINE HYDROCHLORIDE
     Indication: PAIN
     Dosage: 20 MG, BID
     Dates: start: 19920806, end: 19930719
  139. PROZAC [Concomitant]
     Active Substance: FLUOXETINE HYDROCHLORIDE
     Dosage: UNK
     Dates: start: 19931122
  140. TEGRETOL [Concomitant]
     Active Substance: CARBAMAZEPINE
     Indication: FACIAL SPASM
     Dosage: 100 MG, UNK
     Dates: start: 199305
  141. MICARID PLUS [Concomitant]
     Dosage: UNK
     Dates: start: 20030121
  142. OXYCONTIN [Concomitant]
     Active Substance: OXYCODONE HYDROCHLORIDE
     Dosage: UNK
     Dates: start: 200210
  143. DAYPRO [Concomitant]
     Active Substance: OXAPROZIN
     Dosage: UNK
     Dates: start: 199408
  144. DAYPRO [Concomitant]
     Active Substance: OXAPROZIN
     Dosage: UNK
     Dates: start: 200206
  145. CEFZIL [Concomitant]
     Active Substance: CEFPROZIL
     Indication: SINUSITIS
     Dosage: 500 MG, UNK
     Dates: start: 200010
  146. CEFZIL [Concomitant]
     Active Substance: CEFPROZIL
     Dosage: 500 MG, UNK
     Dates: start: 20011204, end: 20011228
  147. ATACAND [Concomitant]
     Active Substance: CANDESARTAN CILEXETIL
     Dosage: UNK
     Dates: start: 200112
  148. CIPROFLOXACIN. [Concomitant]
     Active Substance: CIPROFLOXACIN
     Indication: SINUSITIS
     Dosage: UNK
     Dates: start: 199703
  149. CIPROFLOXACIN. [Concomitant]
     Active Substance: CIPROFLOXACIN
     Dosage: UNK
     Dates: start: 20010206, end: 20010227
  150. CIPROFLOXACIN. [Concomitant]
     Active Substance: CIPROFLOXACIN
     Dosage: UNK
     Dates: start: 20010206
  151. CIPROFLOXACIN. [Concomitant]
     Active Substance: CIPROFLOXACIN
     Dosage: UNK
     Dates: start: 20010227
  152. ERYTHROMYCIN. [Concomitant]
     Active Substance: ERYTHROMYCIN
     Dosage: UNK
     Dates: start: 19970316
  153. PHENERGAN VC W/ CODEINE [Concomitant]
     Active Substance: CODEINE PHOSPHATE\PHENYLEPHRINE HYDROCHLORIDE\PROMETHAZINE HYDROCHLORIDE
     Dosage: UNK
     Dates: start: 199511
  154. PHENERGAN VC W/ CODEINE [Concomitant]
     Active Substance: CODEINE PHOSPHATE\PHENYLEPHRINE HYDROCHLORIDE\PROMETHAZINE HYDROCHLORIDE
     Dosage: UNK
     Dates: start: 199809
  155. LISINOPRIL. [Concomitant]
     Active Substance: LISINOPRIL
     Dosage: UNK
     Dates: start: 199511
  156. LISINOPRIL. [Concomitant]
     Active Substance: LISINOPRIL
     Dosage: UNK
     Dates: start: 199608
  157. AZITHROMYCIN ANHYDROUS. [Concomitant]
     Active Substance: AZITHROMYCIN ANHYDROUS
     Indication: BRONCHITIS
     Dosage: UNK
     Dates: start: 19950316
  158. DEMEROL [Concomitant]
     Active Substance: MEPERIDINE HYDROCHLORIDE
     Indication: COLONOSCOPY
     Dosage: 50 MG, UNK
     Dates: start: 20060828

REACTIONS (1)
  - Chronic kidney disease [Not Recovered/Not Resolved]

NARRATIVE: CASE EVENT DATE: 20140715
